FAERS Safety Report 10789155 (Version 1)
Quarter: 2015Q1

REPORT INFORMATION
  Report Type: Spontaneous
  Country: AU (occurrence: AU)
  Receive Date: 20150212
  Receipt Date: 20150212
  Transmission Date: 20150721
  Serious: Yes (Other)
  Sender: FDA-Public Use
  Company Number: AU-MYLANLABS-2015M1004168

PATIENT

DRUGS (2)
  1. DOXYLIN 100 [Suspect]
     Active Substance: DOXYCYCLINE
     Dosage: 1 DF, QD
     Dates: end: 20150208
  2. DOXYLIN 100 [Suspect]
     Active Substance: DOXYCYCLINE
     Indication: ROSACEA
     Dosage: 2 DF, UNK
     Dates: start: 20150202

REACTIONS (1)
  - Muscular weakness [Not Recovered/Not Resolved]

NARRATIVE: CASE EVENT DATE: 20150206
